FAERS Safety Report 24846966 (Version 1)
Quarter: 2025Q1

REPORT INFORMATION
  Report Type: Report from Study
  Country: US (occurrence: US)
  Receive Date: 20250115
  Receipt Date: 20250115
  Transmission Date: 20250409
  Serious: Yes (Other)
  Sender: ALEXION PHARMACEUTICALS
  Company Number: US-AstraZeneca-CH-00783259A

PATIENT
  Weight: 66.667 kg

DRUGS (4)
  1. DANICOPAN [Suspect]
     Active Substance: DANICOPAN
     Indication: Paroxysmal nocturnal haemoglobinuria
  2. DANICOPAN [Suspect]
     Active Substance: DANICOPAN
     Route: 048
  3. DANICOPAN [Suspect]
     Active Substance: DANICOPAN
  4. DANICOPAN [Suspect]
     Active Substance: DANICOPAN
     Route: 048

REACTIONS (1)
  - Neutropenia [Unknown]
